FAERS Safety Report 23436214 (Version 6)
Quarter: 2024Q1

REPORT INFORMATION
  Report Type: Spontaneous
  Country: NG (occurrence: None)
  Receive Date: 20240124
  Receipt Date: 20240314
  Transmission Date: 20240409
  Serious: Yes (Other)
  Sender: FDA-Public Use
  Company Number: NG-ROCHE-3491944

PATIENT
  Sex: Female

DRUGS (1)
  1. OCREVUS [Suspect]
     Active Substance: OCRELIZUMAB
     Indication: Multiple sclerosis
     Route: 065

REACTIONS (6)
  - Condition aggravated [Unknown]
  - Headache [Unknown]
  - Insomnia [Unknown]
  - Electric shock sensation [Unknown]
  - Asthenia [Unknown]
  - Drug ineffective [Unknown]
